FAERS Safety Report 25778270 (Version 1)
Quarter: 2025Q3

REPORT INFORMATION
  Report Type: Spontaneous
  Country: US (occurrence: US)
  Receive Date: 20250909
  Receipt Date: 20250909
  Transmission Date: 20251021
  Serious: Yes (Life-Threatening, Hospitalization, Disabling)
  Sender: BEIGENE
  Company Number: US-BEIGENE-BGN-2025-015270

PATIENT
  Age: 81 Year

DRUGS (7)
  1. BRUKINSA [Suspect]
     Active Substance: ZANUBRUTINIB
     Indication: Waldenstrom^s macroglobulinaemia
     Dosage: 160 MILLIGRAM, BID
  2. PEPCID [Concomitant]
     Active Substance: FAMOTIDINE
  3. GLUCOSAMINE [Concomitant]
     Active Substance: GLUCOSAMINE
  4. FLOMAX [Concomitant]
     Active Substance: TAMSULOSIN HYDROCHLORIDE
  5. KENALOG [Concomitant]
     Active Substance: TRIAMCINOLONE ACETONIDE
  6. ARGININE [Concomitant]
     Active Substance: ARGININE
  7. DIETARY SUPPLEMENT\GRAPE SEED EXTRACT [Concomitant]
     Active Substance: DIETARY SUPPLEMENT\GRAPE SEED EXTRACT

REACTIONS (15)
  - Pleural effusion [Recovering/Resolving]
  - Aspiration [Recovering/Resolving]
  - Upper respiratory tract infection [Recovering/Resolving]
  - Cough [Unknown]
  - Nasopharyngitis [Unknown]
  - Heart rate increased [Unknown]
  - Peripheral swelling [Unknown]
  - Pulmonary hypertension [Unknown]
  - Blood pressure increased [Unknown]
  - Pyrexia [Unknown]
  - Rash [Recovering/Resolving]
  - Fatigue [Recovering/Resolving]
  - Dyspnoea [Unknown]
  - Infection susceptibility increased [Unknown]
  - Drug ineffective [Unknown]
